FAERS Safety Report 7444354-0 (Version None)
Quarter: 2011Q2

REPORT INFORMATION
  Report Type: 
  Country: None (occurrence: None)
  Receive Date: 20110429
  Receipt Date: 20110415
  Transmission Date: 20111010
  Serious: Yes (Life-Threatening, Hospitalization, Other)
  Sender: FDA-Public Use
  Company Number: GB-RANBAXY-2011R1-42152

PATIENT
  Age: 61 Year
  Sex: Female

DRUGS (3)
  1. GABAPENTIN [Suspect]
     Indication: MUSCULOSKELETAL PAIN
     Dosage: 100 MG TWICE DAILY AND 200 MG AT NIGHT
     Route: 048
     Dates: start: 20101215, end: 20110318
  2. ACETAMINOPHEN [Concomitant]
     Indication: PAIN
     Dosage: 1 G, BID
     Route: 048
  3. PERIOSTAT [Concomitant]
     Indication: TOOTH DISORDER
     Dosage: 1 DF, UNK
     Route: 048

REACTIONS (5)
  - TROPONIN INCREASED [None]
  - ABDOMINAL PAIN [None]
  - ELECTROCARDIOGRAM T WAVE ABNORMAL [None]
  - CHEST PAIN [None]
  - MYOCARDIAL INFARCTION [None]
